FAERS Safety Report 9349476 (Version 3)
Quarter: 2013Q3

REPORT INFORMATION
  Report Type: Spontaneous
  Country: GB (occurrence: GB)
  Receive Date: 20130614
  Receipt Date: 20130816
  Transmission Date: 20140515
  Serious: Yes (Hospitalization)
  Sender: FDA-Public Use
  Company Number: GB-JNJFOC-20130608262

PATIENT
  Age: 2 Year
  Sex: Female

DRUGS (2)
  1. BENADRYL ALLERGY ORAL SYRUP [Suspect]
     Route: 048
  2. BENADRYL ALLERGY ORAL SYRUP [Suspect]
     Indication: SEASONAL ALLERGY
     Route: 048
     Dates: start: 20130608, end: 20130609

REACTIONS (15)
  - Cardiac murmur [Not Recovered/Not Resolved]
  - Dyspnoea [Recovered/Resolved]
  - Hypotonia [Recovered/Resolved]
  - Skin discolouration [Unknown]
  - Lip blister [Recovered/Resolved]
  - Swelling face [Recovered/Resolved]
  - Lip swelling [Recovered/Resolved]
  - Viral upper respiratory tract infection [Recovered/Resolved]
  - Epistaxis [Recovered/Resolved]
  - Hypotonia [Recovered/Resolved]
  - Eye swelling [Recovered/Resolved]
  - Body temperature increased [Recovered/Resolved]
  - Lethargy [Recovered/Resolved]
  - Drug hypersensitivity [Recovered/Resolved]
  - Somnolence [Recovered/Resolved]
